FAERS Safety Report 13870999 (Version 1)
Quarter: 2017Q3

REPORT INFORMATION
  Report Type: Report from Study
  Country: None (occurrence: US)
  Receive Date: 20170816
  Receipt Date: 20170816
  Transmission Date: 20171127
  Serious: Yes (Hospitalization, Other)
  Sender: FDA-Public Use
  Company Number: US-ABBVIE-17K-163-2068165-00

PATIENT
  Age: 48 Year
  Sex: Female

DRUGS (2)
  1. HUMIRA [Suspect]
     Active Substance: ADALIMUMAB
     Indication: CROHN^S DISEASE
     Route: 058
     Dates: start: 201507, end: 201708
  2. PROTONIX [Concomitant]
     Active Substance: PANTOPRAZOLE SODIUM
     Indication: GASTROOESOPHAGEAL REFLUX DISEASE

REACTIONS (7)
  - Menorrhagia [Recovered/Resolved]
  - Uterine inflammation [Not Recovered/Not Resolved]
  - Urinary tract infection [Unknown]
  - Pelvic inflammatory disease [Unknown]
  - White blood cell count increased [Recovering/Resolving]
  - Post procedural infection [Recovering/Resolving]
  - Cervical polyp [Recovered/Resolved]

NARRATIVE: CASE EVENT DATE: 2015
